FAERS Safety Report 12221537 (Version 1)
Quarter: 2016Q1

REPORT INFORMATION
  Report Type: Spontaneous
  Country: FR (occurrence: FR)
  Receive Date: 20160330
  Receipt Date: 20160330
  Transmission Date: 20160526
  Serious: Yes (Hospitalization)
  Sender: FDA-Public Use
  Company Number: FR-PFIZER INC-2016173391

PATIENT
  Age: 70 Year
  Sex: Male

DRUGS (3)
  1. TAZOCILLINE [Suspect]
     Active Substance: PIPERACILLIN SODIUM\TAZOBACTAM SODIUM
     Indication: UROSEPSIS
     Dosage: 4 G, 3X/DAY
     Route: 042
     Dates: start: 20160214, end: 20160220
  2. FURADANTINE [Suspect]
     Active Substance: NITROFURANTOIN
     Indication: UROSEPSIS
     Dosage: 100 MG, 3X/DAY
     Route: 048
     Dates: start: 20160214, end: 20160222
  3. TAZOCILLINE [Suspect]
     Active Substance: PIPERACILLIN SODIUM\TAZOBACTAM SODIUM
     Dosage: 4 G, 2X/DAY
     Route: 042
     Dates: start: 20160223, end: 20160224

REACTIONS (3)
  - Renal tubular disorder [Recovering/Resolving]
  - Crystalluria [Recovering/Resolving]
  - Acute kidney injury [Recovering/Resolving]

NARRATIVE: CASE EVENT DATE: 20160218
